FAERS Safety Report 6068288-1 (Version None)
Quarter: 2009Q1

REPORT INFORMATION
  Report Type: 
  Country: None (occurrence: None)
  Receive Date: 20090206
  Receipt Date: 20090202
  Transmission Date: 20090719
  Serious: Yes (Hospitalization, Disabling, Other)
  Sender: FDA-Public Use
  Company Number: PHHY2009FR03742

PATIENT
  Age: 86 Year
  Sex: Male

DRUGS (6)
  1. GLEEVEC [Suspect]
     Indication: CHRONIC MYELOID LEUKAEMIA
     Dosage: 400 MG/DAY
     Dates: start: 20020315
  2. HEMIGOXINE [Concomitant]
  3. PREVISCAN [Concomitant]
  4. ALDACTONE [Concomitant]
  5. FONZYLANE [Concomitant]
  6. NEO-MERCAZOLE TAB [Concomitant]

REACTIONS (7)
  - ARTERIAL DISORDER [None]
  - ARTERITIS [None]
  - CATARACT [None]
  - GANGRENE [None]
  - HYPERPARATHYROIDISM [None]
  - PSEUDOMONAS INFECTION [None]
  - TOE AMPUTATION [None]
